FAERS Safety Report 6332142-8 (Version None)
Quarter: 2009Q3

REPORT INFORMATION
  Report Type: 
  Country: None (occurrence: None)
  Receive Date: 20090828
  Receipt Date: 20090819
  Transmission Date: 20100115
  Serious: Yes (Disabling)
  Sender: FDA-Public Use
  Company Number: JP-ASTRAZENECA-2009SE06315

PATIENT
  Sex: Male
  Weight: 48 kg

DRUGS (9)
  1. BLOPRESS [Suspect]
     Indication: HYPERTENSION
     Route: 048
     Dates: start: 20080709, end: 20090520
  2. BLOPRESS [Suspect]
     Route: 048
     Dates: end: 20090711
  3. FOIPAN [Concomitant]
     Indication: PANCREATITIS CHRONIC
     Route: 048
     Dates: start: 20080709
  4. BERIZYM [Concomitant]
     Indication: PANCREATITIS CHRONIC
     Route: 048
     Dates: start: 20080709
  5. PARIET [Concomitant]
     Indication: PANCREATITIS CHRONIC
     Route: 048
     Dates: start: 20090520
  6. METHYCOBAL [Concomitant]
     Indication: NEUROPATHY PERIPHERAL
     Route: 048
     Dates: start: 20080709
  7. NORVASC [Concomitant]
     Indication: HYPERTENSION
     Route: 048
     Dates: start: 20080709
  8. WARFARIN [Concomitant]
     Indication: ATRIAL FIBRILLATION
     Route: 048
     Dates: start: 20080709
  9. GABAPEN [Concomitant]
     Indication: EPILEPSY
     Route: 048
     Dates: start: 20080709

REACTIONS (2)
  - HYPERKALAEMIA [None]
  - TUBULOINTERSTITIAL NEPHRITIS [None]
